FAERS Safety Report 14487738 (Version 2)
Quarter: 2018Q1

REPORT INFORMATION
  Report Type: Report from Study
  Country: DE (occurrence: DE)
  Receive Date: 20180205
  Receipt Date: 20180206
  Transmission Date: 20180509
  Serious: Yes (Other)
  Sender: FDA-Public Use
  Company Number: PHHY2018DE012042

PATIENT
  Age: 15 Year
  Sex: Male

DRUGS (1)
  1. AMOCLAV [Suspect]
     Active Substance: AMOXICILLIN\CLAVULANATE POTASSIUM
     Indication: OROPHARYNGEAL PAIN
     Dosage: 1 DF, QD
     Route: 065

REACTIONS (3)
  - Fatigue [Unknown]
  - Pruritus generalised [Unknown]
  - Erythema [Unknown]
